FAERS Safety Report 5301711-6 (Version None)
Quarter: 2007Q2

REPORT INFORMATION
  Report Type: 
  Country: None (occurrence: None)
  Receive Date: 20070419
  Receipt Date: 20070406
  Transmission Date: 20071010
  Serious: Yes (Hospitalization)
  Sender: FDA-Public Use
  Company Number: PHRM2007FR01248

PATIENT
  Age: 92 Year
  Sex: Male
  Weight: 70 kg

DRUGS (12)
  1. ESIDRIX [Suspect]
     Indication: OEDEMA PERIPHERAL
     Dosage: 25 MG, QD
     Route: 048
     Dates: start: 20070101
  2. LASIX [Suspect]
     Indication: OEDEMA PERIPHERAL
     Route: 048
     Dates: start: 20070101
  3. DIGOXIN [Concomitant]
     Dosage: 1 DF, QD
     Route: 048
  4. DIDRONEL [Concomitant]
     Dosage: 400 MG, QD
     Route: 048
  5. PERINDOPRIL ERBUMINE [Concomitant]
     Dosage: 4 MG, BID
     Route: 048
  6. NEXIUM [Concomitant]
     Dosage: 20 MG, QD
     Route: 048
  7. CORTANCYL [Concomitant]
     Dosage: 5 MG, QD
     Route: 048
  8. CACIT D3 [Concomitant]
     Dosage: 1 DF, QD
  9. XANAX [Concomitant]
     Dosage: 0.5 MG, QD
     Route: 048
  10. ZOLPIDEM [Concomitant]
     Dosage: 1 DF, QD
  11. CLAMOXYL [Concomitant]
     Dosage: 3 DF, QD
  12. ALUMINUM HYDROXIDE AND MAGNESIUM TRISILICATE [Concomitant]

REACTIONS (14)
  - ANOREXIA [None]
  - ASTHENIA [None]
  - BLOOD CREATININE INCREASED [None]
  - CREATININE RENAL CLEARANCE DECREASED [None]
  - DARK CIRCLES UNDER EYES [None]
  - DEHYDRATION [None]
  - DIZZINESS [None]
  - GENERAL PHYSICAL HEALTH DETERIORATION [None]
  - LIP DRY [None]
  - RENAL FAILURE [None]
  - THIRST [None]
  - TONGUE DRY [None]
  - VISION BLURRED [None]
  - WEIGHT DECREASED [None]
